FAERS Safety Report 26069873 (Version 1)
Quarter: 2025Q4

REPORT INFORMATION
  Report Type: Spontaneous
  Country: US (occurrence: US)
  Receive Date: 20251120
  Receipt Date: 20251120
  Transmission Date: 20260118
  Serious: No
  Sender: CATALYST PHARMA
  Company Number: US-CATALYST PHARMACEUTICALS-US-CATA-25-01438

PATIENT
  Age: 6 Year
  Sex: Male
  Weight: 29.478 kg

DRUGS (4)
  1. AGAMREE [Suspect]
     Active Substance: VAMOROLONE
     Indication: Duchenne muscular dystrophy
     Dosage: 3.7 ML DAILY
     Route: 048
     Dates: start: 20250305
  2. COENZYME Q10 [Concomitant]
     Active Substance: DIETARY SUPPLEMENT\UBIDECARENONE
     Indication: Hypovitaminosis
     Dosage: 30 MG DAILY
     Route: 065
  3. FLINTSTONES OMEGA 3 DHA [Concomitant]
     Indication: Hypovitaminosis
     Dosage: ONCE A DAY
     Route: 065
  4. FAMOTIDINE [Concomitant]
     Active Substance: FAMOTIDINE
     Indication: Gastrooesophageal reflux disease
     Dosage: 3.7 ML DAILY
     Route: 048

REACTIONS (2)
  - Anger [Not Recovered/Not Resolved]
  - Aggression [Not Recovered/Not Resolved]

NARRATIVE: CASE EVENT DATE: 20250801
